FAERS Safety Report 4998494-6 (Version None)
Quarter: 2006Q2

REPORT INFORMATION
  Report Type: 
  Country: None (occurrence: None)
  Receive Date: 20060508
  Receipt Date: 20060425
  Transmission Date: 20061013
  Serious: Yes (Hospitalization)
  Sender: FDA-Public Use
  Company Number: 2006055835

PATIENT
  Age: 10 Month
  Sex: Female

DRUGS (3)
  1. FOSPHENYTOIN SODIUM [Suspect]
     Indication: ILL-DEFINED DISORDER
     Dosage: 20 MG/KG, INTRAVENOUS
     Route: 042
  2. MIDAZOLAM HCL [Suspect]
     Indication: CONVULSION
     Dosage: SEE IMAGE
  3. CITALOPRAM HYDROBROMIDE [Suspect]
     Indication: ILL-DEFINED DISORDER

REACTIONS (4)
  - CONVULSION [None]
  - DRUG INEFFECTIVE [None]
  - GRAND MAL CONVULSION [None]
  - NYSTAGMUS [None]
